FAERS Safety Report 11010650 (Version 1)
Quarter: 2015Q2

REPORT INFORMATION
  Report Type: Spontaneous
  Country: US (occurrence: US)
  Receive Date: 20150410
  Receipt Date: 20150410
  Transmission Date: 20150821
  Serious: Yes (Hospitalization, Other)
  Sender: FDA-Public Use
  Company Number: US-ELI_LILLY_AND_COMPANY-US201503010701

PATIENT
  Sex: Male

DRUGS (3)
  1. INSULIN HUMAN [Suspect]
     Active Substance: INSULIN HUMAN
     Indication: TYPE 1 DIABETES MELLITUS
     Dosage: 40 U, EACH MORNING
     Route: 065
     Dates: start: 1982
  2. HUMALOG [Suspect]
     Active Substance: INSULIN LISPRO
     Indication: TYPE 1 DIABETES MELLITUS
     Route: 065
  3. HUMULIN N [Suspect]
     Active Substance: INSULIN HUMAN
     Indication: TYPE 1 DIABETES MELLITUS
     Dosage: 6 U, EACH MORNING
     Route: 065
     Dates: start: 1982

REACTIONS (11)
  - Nodule [Unknown]
  - Drug effect increased [Unknown]
  - Blood glucose decreased [Unknown]
  - Weight decreased [Unknown]
  - Cataract [Unknown]
  - Blood glucose fluctuation [Unknown]
  - Injury associated with device [Unknown]
  - Wrong drug administered [Unknown]
  - Road traffic accident [Unknown]
  - Weight increased [Unknown]
  - Visual acuity reduced [Not Recovered/Not Resolved]
